FAERS Safety Report 21324892 (Version 1)
Quarter: 2022Q3

REPORT INFORMATION
  Report Type: Spontaneous
  Country: US (occurrence: None)
  Receive Date: 20220912
  Receipt Date: 20220912
  Transmission Date: 20221026
  Serious: Yes (Other)
  Sender: FDA-Public Use
  Company Number: 2022A311994

PATIENT
  Age: 26473 Day
  Sex: Female

DRUGS (1)
  1. BREZTRI [Suspect]
     Active Substance: BUDESONIDE\FORMOTEROL\GLYCOPYRROLATE
     Dosage: 160/9/4.8 MCG
     Route: 055

REACTIONS (3)
  - Cough [Unknown]
  - Cataract [Unknown]
  - Illness [Unknown]

NARRATIVE: CASE EVENT DATE: 20220907
